FAERS Safety Report 21061662 (Version 1)
Quarter: 2022Q3

REPORT INFORMATION
  Report Type: Report from Study
  Country: US (occurrence: US)
  Receive Date: 20220709
  Receipt Date: 20220709
  Transmission Date: 20221027
  Serious: Yes (Other)
  Sender: FDA-Public Use
  Company Number: US-ABBVIE-22K-163-4461327-00

PATIENT
  Age: 37 Year
  Sex: Male

DRUGS (1)
  1. HUMIRA [Suspect]
     Active Substance: ADALIMUMAB
     Indication: Crohn^s disease
     Dosage: CITRATE FREE
     Route: 058
     Dates: start: 202202

REACTIONS (5)
  - Loss of consciousness [Recovered/Resolved]
  - Skin laceration [Unknown]
  - Fall [Unknown]
  - Syncope [Unknown]
  - Dehydration [Unknown]

NARRATIVE: CASE EVENT DATE: 20220618
